FAERS Safety Report 25228059 (Version 1)
Quarter: 2025Q2

REPORT INFORMATION
  Report Type: Spontaneous
  Country: AU (occurrence: AU)
  Receive Date: 20250423
  Receipt Date: 20250423
  Transmission Date: 20250716
  Serious: Yes (Other)
  Sender: ALKEM
  Company Number: AU-ALKEM LABORATORIES LIMITED-AU-ALKEM-2024-13763

PATIENT
  Age: 87 Year
  Sex: Male

DRUGS (3)
  1. DABIGATRAN ETEXILATE MESYLATE [Suspect]
     Active Substance: DABIGATRAN ETEXILATE MESYLATE
     Indication: Product used for unknown indication
     Route: 065
  2. ASPIRIN [Suspect]
     Active Substance: ASPIRIN
     Indication: Product used for unknown indication
     Route: 065
  3. IDARUCIZUMAB [Concomitant]
     Active Substance: IDARUCIZUMAB
     Indication: Product used for unknown indication
     Route: 065

REACTIONS (1)
  - Melaena [Unknown]
